FAERS Safety Report 19812118 (Version 1)
Quarter: 2021Q3

REPORT INFORMATION
  Report Type: Spontaneous
  Country: US (occurrence: US)
  Receive Date: 20210910
  Receipt Date: 20210910
  Transmission Date: 20211014
  Serious: Yes (Hospitalization)
  Sender: FDA-Public Use
  Company Number: US-CADILA HEALTHCARE LIMITED-US-ZYDUS-055920

PATIENT
  Sex: Male

DRUGS (1)
  1. MELOXICAM 15 MILLIGRAM TABLET [Suspect]
     Active Substance: MELOXICAM
     Indication: BACK PAIN
     Dosage: 15 MILLIGRAM, QD
     Route: 048
     Dates: start: 20200826, end: 20200908

REACTIONS (4)
  - Product use in unapproved indication [Recovered/Resolved]
  - Chest pain [Recovered/Resolved]
  - Drug ineffective for unapproved indication [Recovered/Resolved]
  - Abdominal pain upper [Recovered/Resolved]

NARRATIVE: CASE EVENT DATE: 20200826
